FAERS Safety Report 17067244 (Version 1)
Quarter: 2019Q4

REPORT INFORMATION
  Report Type: Report from Study
  Country: US (occurrence: US)
  Receive Date: 20191122
  Receipt Date: 20191122
  Transmission Date: 20200122
  Serious: Yes (Hospitalization)
  Sender: FDA-Public Use
  Company Number: US-ACTELION-A-NJ2019-197236

PATIENT
  Sex: Female
  Weight: 77.1 kg

DRUGS (3)
  1. SILDENAFIL CITRATE. [Concomitant]
     Active Substance: SILDENAFIL CITRATE
  2. OPSUMIT [Suspect]
     Active Substance: MACITENTAN
     Indication: PULMONARY ARTERIAL HYPERTENSION
     Dosage: 10 MG, QD
     Route: 048
     Dates: start: 201910
  3. ELIQUIS [Concomitant]
     Active Substance: APIXABAN

REACTIONS (16)
  - Cough [Unknown]
  - Nasal congestion [Unknown]
  - Poor quality sleep [Unknown]
  - Abdominal distension [Unknown]
  - Back pain [Unknown]
  - Urinary incontinence [Unknown]
  - Oropharyngeal pain [Unknown]
  - Adverse event [Unknown]
  - Urinary tract infection [Unknown]
  - Conjunctival discolouration [Recovered/Resolved]
  - Nasopharyngitis [Unknown]
  - Fluid retention [Unknown]
  - Dysuria [Unknown]
  - Bronchitis [Recovered/Resolved]
  - Malaise [Unknown]
  - Headache [Unknown]
